FAERS Safety Report 25161236 (Version 1)
Quarter: 2025Q2

REPORT INFORMATION
  Report Type: Spontaneous
  Country: DE (occurrence: DE)
  Receive Date: 20250404
  Receipt Date: 20250404
  Transmission Date: 20250716
  Serious: Yes (Other)
  Sender: EISAI
  Company Number: DE-Eisai-EC-2025-183973

PATIENT
  Age: 49 Year
  Sex: Female

DRUGS (3)
  1. LENVIMA [Suspect]
     Active Substance: LENVATINIB
     Indication: Ovarian cancer
  2. KEYTRUDA [Suspect]
     Active Substance: PEMBROLIZUMAB
     Indication: Ovarian cancer
  3. KEYTRUDA [Suspect]
     Active Substance: PEMBROLIZUMAB
     Dates: start: 20240910, end: 20241223

REACTIONS (1)
  - Immune-mediated lung disease [Not Recovered/Not Resolved]

NARRATIVE: CASE EVENT DATE: 20241201
